FAERS Safety Report 10238721 (Version 3)
Quarter: 2014Q3

REPORT INFORMATION
  Report Type: Spontaneous
  Country: BR (occurrence: BR)
  Receive Date: 20140616
  Receipt Date: 20140717
  Transmission Date: 20150326
  Serious: Yes (Hospitalization)
  Sender: FDA-Public Use
  Company Number: BR-NOVOPROD-408625

PATIENT
  Sex: Female
  Weight: 60 kg

DRUGS (6)
  1. ATACAND [Concomitant]
     Active Substance: CANDESARTAN CILEXETIL
     Indication: CARDIAC DISORDER
     Dosage: 1 TAB
     Route: 048
     Dates: start: 2014
  2. LEVEMIR [Suspect]
     Active Substance: INSULIN DETEMIR
     Dosage: 50 IU, QD (30IU IN MORNING AND 20IU BEFORE DINNER)
     Route: 058
     Dates: end: 20140531
  3. LEVEMIR [Suspect]
     Active Substance: INSULIN DETEMIR
     Indication: TYPE 2 DIABETES MELLITUS
     Dosage: 35 IU, QD (20IU IN MORNING AND 15 IU BEFORE DINNER)
     Route: 058
     Dates: start: 201404
  4. CAPILAREMA [Concomitant]
     Dosage: 1 TAB
     Route: 048
     Dates: start: 2014
  5. OMEPRAZOLE. [Concomitant]
     Active Substance: OMEPRAZOLE
     Indication: GASTRIC DISORDER
     Dosage: 1 TAB
     Route: 048
  6. SLOW-K [Concomitant]
     Active Substance: POTASSIUM CHLORIDE
     Dosage: 1 TAB
     Route: 048
     Dates: start: 2014

REACTIONS (2)
  - Blood glucose increased [Recovered/Resolved]
  - Coronary artery disease [Recovered/Resolved]
